FAERS Safety Report 17292615 (Version 1)
Quarter: 2020Q1

REPORT INFORMATION
  Report Type: Spontaneous
  Country: US (occurrence: US)
  Receive Date: 20191227
  Receipt Date: 20191227
  Transmission Date: 20200409
  Serious: Yes (Other)
  Sender: FDA-Public Use
  Company Number: None

PATIENT
  Age: 12 Year
  Sex: Male
  Weight: 42.18 kg

DRUGS (3)
  1. DEXMETHYLPHENIDATE [Suspect]
     Active Substance: DEXMETHYLPHENIDATE HYDROCHLORIDE
     Indication: AUTISM SPECTRUM DISORDER
     Dosage: ?          OTHER FREQUENCY:QAM;?
     Route: 048
     Dates: start: 201503, end: 201503
  2. DEXMETHYLPHENIDATE [Suspect]
     Active Substance: DEXMETHYLPHENIDATE HYDROCHLORIDE
     Indication: PRODUCT USED FOR UNKNOWN INDICATION
  3. DEXMETHYLPHENIDATE [Suspect]
     Active Substance: DEXMETHYLPHENIDATE HYDROCHLORIDE
     Indication: ATTENTION DEFICIT/HYPERACTIVITY DISORDER
     Dosage: ?          OTHER FREQUENCY:QAM;?
     Route: 048
     Dates: start: 201503, end: 201503

REACTIONS (5)
  - Distractibility [None]
  - Psychomotor hyperactivity [None]
  - Depressed mood [None]
  - Drug ineffective [None]
  - Irritability [None]

NARRATIVE: CASE EVENT DATE: 20150410
